FAERS Safety Report 18502339 (Version 1)
Quarter: 2020Q4

REPORT INFORMATION
  Report Type: Other
  Country: US (occurrence: US)
  Receive Date: 20201113
  Receipt Date: 20201113
  Transmission Date: 20210114
  Serious: No
  Sender: FDA-Public Use
  Company Number: US-LEADIANT BIOSCIENCES INC-2020STPI000217

PATIENT
  Sex: Male

DRUGS (10)
  1. LISINOPRIL. [Concomitant]
     Active Substance: LISINOPRIL
  2. TACROLIMUS. [Concomitant]
     Active Substance: TACROLIMUS
  3. CALCIUM [Concomitant]
     Active Substance: CALCIUM
  4. IRON [Concomitant]
     Active Substance: IRON
  5. MYCOPHENOLATE [Concomitant]
     Active Substance: MYCOPHENOLIC ACID
  6. CYSTARAN [Suspect]
     Active Substance: CYSTEAMINE HYDROCHLORIDE
     Indication: CYSTINOSIS
     Dosage: INSTILL ONE DROP INTO BOTH EYES 6 TIMES PER DAY
     Route: 047
     Dates: start: 20150918
  7. LEVOCARNITIN [Concomitant]
  8. PROCYSBI [Concomitant]
     Active Substance: CYSTEAMINE BITARTRATE
  9. CHLOROPHYLL [Concomitant]
  10. VITAMIN D3 [Concomitant]
     Active Substance: CHOLECALCIFEROL

REACTIONS (1)
  - Memory impairment [Not Recovered/Not Resolved]
